FAERS Safety Report 8814548 (Version 1)
Quarter: 2012Q4

REPORT INFORMATION
  Report Type: Spontaneous
  Country: US (occurrence: None)
  Receive Date: 20120927
  Receipt Date: 20120927
  Transmission Date: 20130627
  Serious: No
  Sender: FDA-Public Use
  Company Number: None

PATIENT

DRUGS (1)
  1. HUMIRA [Suspect]
     Indication: RHEUMATOID ARTHRITIS
     Dosage: 40mg Qweek Subcutaneous
     Route: 058
     Dates: start: 20110907, end: 20120830

REACTIONS (4)
  - Oedema peripheral [None]
  - Oedema peripheral [None]
  - Skin ulcer [None]
  - Wound [None]
